FAERS Safety Report 5573658-1 (Version None)
Quarter: 2007Q4

REPORT INFORMATION
  Report Type: 
  Country: None (occurrence: None)
  Receive Date: 20071220
  Receipt Date: 20071211
  Transmission Date: 20080405
  Serious: Yes (Hospitalization)
  Sender: FDA-Public Use
  Company Number: 231161J07USA

PATIENT
  Age: 42 Year
  Sex: Male

DRUGS (8)
  1. REBIF [Suspect]
     Indication: MULTIPLE SCLEROSIS
     Dosage: 44 MCG, 3 IN 1 WEEKS, SUBCUTANEOUS : 44 MCG, ONCE, SUBCUTANEOUS
     Route: 058
     Dates: start: 20070713, end: 20070917
  2. REBIF [Suspect]
     Indication: MULTIPLE SCLEROSIS
     Dosage: 44 MCG, 3 IN 1 WEEKS, SUBCUTANEOUS : 44 MCG, ONCE, SUBCUTANEOUS
     Route: 058
     Dates: start: 20071210, end: 20071210
  3. SYNTHROID [Concomitant]
  4. LISINOPRIL [Concomitant]
  5. CAPTOPRESS (CAPTOPRIL) [Concomitant]
  6. GABAPENTIN [Concomitant]
  7. HYDROCODONE BITARTRATE [Concomitant]
  8. FLEXERIL [Concomitant]

REACTIONS (7)
  - ASTHENIA [None]
  - CONDITION AGGRAVATED [None]
  - DEPRESSION [None]
  - GASTROINTESTINAL INFECTION [None]
  - HYPERTENSION [None]
  - INFLUENZA LIKE ILLNESS [None]
  - PANCREATITIS [None]
